FAERS Safety Report 11774114 (Version 2)
Quarter: 2015Q4

REPORT INFORMATION
  Report Type: Report from Study
  Country: DE (occurrence: DE)
  Receive Date: 20151124
  Receipt Date: 20151130
  Transmission Date: 20160304
  Serious: Yes (Hospitalization)
  Sender: FDA-Public Use
  Company Number: DE-BAYER-2015-458038

PATIENT
  Age: 81 Year
  Sex: Male
  Weight: 105 kg

DRUGS (9)
  1. SORAFENIB (RAF KINASE INHIBITOR) [Suspect]
     Active Substance: SORAFENIB
     Indication: HEPATOCELLULAR CARCINOMA
     Dosage: 200 MG, QD
     Route: 048
     Dates: end: 20151023
  2. CODEIN [Concomitant]
     Active Substance: CODEINE
     Indication: COUGH
     Dosage: 20 DROPS
     Route: 048
     Dates: start: 20151024, end: 20151026
  3. CODEIN [Concomitant]
     Active Substance: CODEINE
     Indication: COUGH
     Dosage: 20 DROPS
     Route: 048
     Dates: start: 20151026, end: 20151029
  4. SORAFENIB (RAF KINASE INHIBITOR) [Suspect]
     Active Substance: SORAFENIB
     Indication: HEPATOCELLULAR CARCINOMA
     Dosage: UNK
     Route: 048
     Dates: start: 20150716
  5. PRIMOVIST [Suspect]
     Active Substance: GADOXETATE DISODIUM
     Indication: HEPATOCELLULAR CARCINOMA
  6. TOREM [Concomitant]
     Active Substance: TORSEMIDE
     Indication: OEDEMA PERIPHERAL
     Dosage: 10 MG, QD
     Route: 048
     Dates: start: 20151029
  7. CANDESARTAN CILEXETIL. [Concomitant]
     Active Substance: CANDESARTAN CILEXETIL
     Indication: HYPERTENSION
     Dosage: DAILY DOSE 8 MG
     Route: 048
     Dates: start: 2014
  8. ASPIRIN [ACETYLSALICYLIC ACID] [Concomitant]
     Indication: ISCHAEMIC HEART DISEASE PROPHYLAXIS
     Dosage: DAILY DOSE 100 MG
     Route: 048
     Dates: start: 20151024
  9. SIMVAHEXAL [Concomitant]
     Active Substance: SIMVASTATIN
     Indication: HYPERLIPIDAEMIA
     Dosage: DAILY DOSE 20 MG
     Route: 048
     Dates: start: 20140425

REACTIONS (3)
  - Ascites [Not Recovered/Not Resolved]
  - Haemorrhoidal haemorrhage [Recovered/Resolved]
  - Lower gastrointestinal haemorrhage [Recovered/Resolved]

NARRATIVE: CASE EVENT DATE: 20151024
